FAERS Safety Report 9749830 (Version 2)
Quarter: 2013Q4

REPORT INFORMATION
  Report Type: Spontaneous
  Country: US (occurrence: US)
  Receive Date: 20131212
  Receipt Date: 20131230
  Transmission Date: 20140711
  Serious: Yes (Other)
  Sender: FDA-Public Use
  Company Number: US-PFIZER INC-2013354347

PATIENT
  Age: 46 Year
  Sex: Female
  Weight: 79.37 kg

DRUGS (6)
  1. LYRICA [Suspect]
     Indication: NERVE COMPRESSION
     Dosage: 75 MG, 3X/DAY
     Route: 048
     Dates: end: 20131206
  2. LYRICA [Suspect]
     Indication: NEURALGIA
  3. VICODIN [Concomitant]
     Dosage: UNK
  4. PROZAC [Concomitant]
     Dosage: 60 MG, 1X/DAY
  5. NORFLEX [Concomitant]
     Dosage: UNK, 2X/DAY
  6. ATIVAN [Concomitant]
     Dosage: UNK, AS NEEDED

REACTIONS (5)
  - Feeling abnormal [Recovering/Resolving]
  - Anxiety [Recovering/Resolving]
  - Drug withdrawal syndrome [Recovered/Resolved]
  - Nervousness [Recovered/Resolved]
  - Abdominal discomfort [Recovered/Resolved]
